FAERS Safety Report 7916541-6 (Version None)
Quarter: 2011Q4

REPORT INFORMATION
  Report Type: 
  Country: None (occurrence: None)
  Receive Date: 20111116
  Receipt Date: 20111107
  Transmission Date: 20120403
  Serious: Yes (Hospitalization)
  Sender: FDA-Public Use
  Company Number: US-JNJFOC-20111103370

PATIENT
  Sex: Male
  Weight: 92.99 kg

DRUGS (1)
  1. INVEGA [Suspect]
     Indication: SCHIZOPHRENIA
     Route: 048

REACTIONS (6)
  - ABNORMAL BEHAVIOUR [None]
  - SKIN REACTION [None]
  - INSOMNIA [None]
  - FEELING HOT [None]
  - DERMATITIS [None]
  - PRODUCT QUALITY ISSUE [None]
